FAERS Safety Report 6760758-3 (Version None)
Quarter: 2010Q2

REPORT INFORMATION
  Report Type: 
  Country: None (occurrence: None)
  Receive Date: 20100608
  Receipt Date: 20100527
  Transmission Date: 20101027
  Serious: Yes (Other)
  Sender: FDA-Public Use
  Company Number: GB-PFIZER INC-2010067152

PATIENT

DRUGS (2)
  1. PHENYTOIN SODIUM CAP [Suspect]
     Dosage: 600 MG, 1X/DAY
  2. AZITHROMYCIN [Concomitant]

REACTIONS (2)
  - ANTICONVULSANT DRUG LEVEL DECREASED [None]
  - CONVULSION [None]
